FAERS Safety Report 8008650-0 (Version None)
Quarter: 2011Q4

REPORT INFORMATION
  Report Type: 
  Country: None (occurrence: None)
  Receive Date: 20111227
  Receipt Date: 20111213
  Transmission Date: 20120403
  Serious: Yes (Hospitalization)
  Sender: FDA-Public Use
  Company Number: FR-MERCK-1112USA02135

PATIENT
  Age: 86 Year
  Sex: Male

DRUGS (4)
  1. CIPROFLOXACIN [Suspect]
     Route: 042
     Dates: start: 20110929, end: 20110929
  2. SUTENT [Suspect]
     Indication: RENAL CANCER METASTATIC
     Route: 048
     Dates: end: 20110922
  3. ACETAMINOPHEN [Concomitant]
     Route: 042
     Dates: start: 20110930, end: 20111008
  4. PRIMAXIN [Suspect]
     Route: 042
     Dates: start: 20110930, end: 20111005

REACTIONS (2)
  - BLOOD AMYLASE INCREASED [None]
  - LIPASE INCREASED [None]
